FAERS Safety Report 21758729 (Version 1)
Quarter: 2022Q4

REPORT INFORMATION
  Report Type: Spontaneous
  Country: CA (occurrence: CA)
  Receive Date: 20221221
  Receipt Date: 20221221
  Transmission Date: 20230113
  Serious: Yes (Hospitalization)
  Sender: FDA-Public Use
  Company Number: CA-SPECGX-T202202473

PATIENT
  Age: 21 Year
  Sex: Male

DRUGS (1)
  1. METHADOSE [Suspect]
     Active Substance: METHADONE HYDROCHLORIDE
     Indication: Drug withdrawal maintenance therapy
     Dosage: UNK
     Route: 065

REACTIONS (3)
  - Hospitalisation [Unknown]
  - Feeling abnormal [Unknown]
  - Product dose omission issue [Unknown]
